FAERS Safety Report 9957183 (Version 1)
Quarter: 2014Q1

REPORT INFORMATION
  Report Type: Report from Study
  Country: US (occurrence: US)
  Receive Date: 20140304
  Receipt Date: 20140304
  Transmission Date: 20141002
  Serious: No
  Sender: FDA-Public Use
  Company Number: US-ABBVIE-13P-163-1097890-00

PATIENT
  Sex: Female

DRUGS (5)
  1. HUMIRA [Suspect]
     Indication: PSORIASIS
  2. ELADIL [Concomitant]
     Indication: PSORIASIS
  3. CLOBEX [Concomitant]
     Indication: PSORIASIS
     Dosage: SPRAY AS NEEDED ON SCALP
  4. LEVOTHYROXINE [Concomitant]
     Indication: HYPOTHYROIDISM
  5. DAYPRO [Concomitant]
     Indication: ARTHRITIS
     Dosage: 600 MG DAILY

REACTIONS (1)
  - Injection site bruising [Not Recovered/Not Resolved]
